FAERS Safety Report 5563295-7 (Version None)
Quarter: 2007Q4

REPORT INFORMATION
  Report Type: 
  Country: None (occurrence: None)
  Receive Date: 20071217
  Receipt Date: 20071205
  Transmission Date: 20080405
  Serious: Yes (Hospitalization)
  Sender: FDA-Public Use
  Company Number: FR-ROCHE-535520

PATIENT
  Age: 11 Year
  Sex: Female

DRUGS (6)
  1. RIVOTRIL [Suspect]
     Indication: DRUG USE FOR UNKNOWN INDICATION
     Dosage: PROGRESSIVELY DECREASED.
     Route: 048
     Dates: start: 20070903, end: 20071025
  2. LAROXYL [Suspect]
     Indication: DRUG USE FOR UNKNOWN INDICATION
     Dosage: DRUG REPORTED: LAROXYL 40 MG/ML SOL BUV
     Route: 048
     Dates: start: 20070903, end: 20071019
  3. TARDYFERON [Concomitant]
     Dates: start: 20070903
  4. ACTISKENAN [Concomitant]
     Dates: start: 20070903
  5. LOVENOX [Concomitant]
     Dates: start: 20070903
  6. FORLAX [Concomitant]
     Dates: start: 20070903

REACTIONS (1)
  - NEUTROPENIA [None]
